FAERS Safety Report 7551098-3 (Version None)
Quarter: 2011Q2

REPORT INFORMATION
  Report Type: 
  Country: None (occurrence: None)
  Receive Date: 20110616
  Receipt Date: 20110606
  Transmission Date: 20111010
  Serious: Yes (Life-Threatening, Hospitalization)
  Sender: FDA-Public Use
  Company Number: US-NOVOPROD-329381

PATIENT
  Sex: Male

DRUGS (3)
  1. VICTOZA [Suspect]
     Indication: TYPE 2 DIABETES MELLITUS
     Dosage: 0.6 MG, QD
     Route: 058
     Dates: start: 20101107, end: 20101201
  2. VICTOZA [Suspect]
     Dosage: 1.2 MG, QD
     Dates: start: 20101201, end: 20110501
  3. COUMADIN [Concomitant]
     Indication: PULMONARY EMBOLISM
     Dosage: UNK

REACTIONS (7)
  - RENAL FAILURE ACUTE [None]
  - NAUSEA [None]
  - ACUTE RESPIRATORY FAILURE [None]
  - VOMITING [None]
  - HYPOVOLAEMIA [None]
  - PANCREATITIS ACUTE [None]
  - UNRESPONSIVE TO STIMULI [None]
